FAERS Safety Report 4510234-3 (Version None)
Quarter: 2004Q4

REPORT INFORMATION
  Report Type: 
  Country: None (occurrence: None)
  Receive Date: 20041124
  Receipt Date: 20040830
  Transmission Date: 20050328
  Serious: Yes (Other)
  Sender: FDA-Public Use
  Company Number: US-ROCHE-379171

PATIENT
  Age: 48 Year
  Sex: Male
  Weight: 97.5 kg

DRUGS (7)
  1. PEGASYS [Suspect]
     Route: 058
     Dates: start: 20040622
  2. COPEGUS [Suspect]
     Route: 048
     Dates: start: 20040622
  3. WELLBUTRIN [Suspect]
     Indication: DEPRESSION
     Dosage: FIRST THERAPY.
     Route: 048
     Dates: start: 20040505
  4. WELLBUTRIN [Suspect]
     Dosage: SECOND THERAPY.
     Route: 048
  5. ATENOLOL [Concomitant]
     Indication: HYPERTENSION
     Route: 048
     Dates: start: 20040115
  6. BEXTRA [Concomitant]
     Indication: ARTHRITIS
     Route: 048
     Dates: start: 20040115
  7. ZANAFLEX [Concomitant]
     Route: 048
     Dates: start: 20040115

REACTIONS (11)
  - ANGER [None]
  - BACK PAIN [None]
  - BLINDNESS [None]
  - DEPRESSION [None]
  - DYSPNOEA [None]
  - HEADACHE [None]
  - MYALGIA [None]
  - ROAD TRAFFIC ACCIDENT [None]
  - TINNITUS [None]
  - VISUAL ACUITY REDUCED [None]
  - WEIGHT DECREASED [None]
